FAERS Safety Report 4947581-7 (Version None)
Quarter: 2006Q1

REPORT INFORMATION
  Report Type: 
  Country: None (occurrence: None)
  Receive Date: 20060314
  Receipt Date: 20060227
  Transmission Date: 20060701
  Serious: Yes (Hospitalization)
  Sender: FDA-Public Use
  Company Number: 2005165132

PATIENT
  Sex: 0

DRUGS (1)
  1. GEODON [Suspect]
     Indication: AFFECTIVE DISORDER
     Dosage: 200-240 (1 IN 1 D)

REACTIONS (2)
  - AFFECTIVE DISORDER [None]
  - RENAL IMPAIRMENT [None]
